FAERS Safety Report 4916630-4 (Version None)
Quarter: 2006Q1

REPORT INFORMATION
  Report Type: 
  Country: None (occurrence: None)
  Receive Date: 20060216
  Receipt Date: 20060216
  Transmission Date: 20060701
  Serious: Yes (Life-Threatening, Other)
  Sender: FDA-Public Use
  Company Number: None

PATIENT
  Age: 15 Year
  Sex: Male
  Weight: 72.5755 kg

DRUGS (1)
  1. SOTRET [Suspect]
     Indication: ACNE
     Dosage: 1 CAPSULE DAILY PO
     Route: 048
     Dates: start: 20060119, end: 20060205

REACTIONS (6)
  - DRUG HYPERSENSITIVITY [None]
  - HEADACHE [None]
  - INTRACRANIAL PRESSURE INCREASED [None]
  - RASH [None]
  - VISION BLURRED [None]
  - VOMITING [None]
